FAERS Safety Report 5155099-4 (Version None)
Quarter: 2006Q4

REPORT INFORMATION
  Report Type: 
  Country: None (occurrence: None)
  Receive Date: 20061121
  Receipt Date: 20061114
  Transmission Date: 20070319
  Serious: Yes (Congenital Anomaly)
  Sender: FDA-Public Use
  Company Number: 06P-167-0340943-00

PATIENT

DRUGS (6)
  1. ABACAVIR [Suspect]
     Indication: VIRAL INFECTION
  2. NEVIRAPINE [Suspect]
     Indication: VIRAL INFECTION
     Dosage: 400MG PER DAY
  3. NORVIR [Suspect]
     Indication: VIRAL INFECTION
     Dosage: 200MG PER DAY
     Dates: start: 20060411
  4. LAMIVUDINE [Suspect]
     Indication: VIRAL INFECTION
     Dates: start: 20060411
  5. ZIDOVUDINE [Suspect]
     Indication: VIRAL INFECTION
     Dates: start: 20060411
  6. SAQUINAVIR [Suspect]
     Indication: VIRAL INFECTION
     Dosage: 2000MG PER DAY
     Dates: start: 20060411

REACTIONS (2)
  - ALPHA 1 FOETOPROTEIN INCREASED [None]
  - DRUG EXPOSURE DURING PREGNANCY [None]
